FAERS Safety Report 23435139 (Version 1)
Quarter: 2024Q1

REPORT INFORMATION
  Report Type: Spontaneous
  Country: US (occurrence: US)
  Receive Date: 20240123
  Receipt Date: 20240123
  Transmission Date: 20240410
  Serious: No
  Sender: FDA-Public Use
  Company Number: US-PURDUE-USA-2023-0306805

PATIENT

DRUGS (1)
  1. ACETAMINOPHEN\OXYCODONE HYDROCHLORIDE [Suspect]
     Active Substance: ACETAMINOPHEN\OXYCODONE HYDROCHLORIDE
     Indication: Pain
     Dosage: 1 TABLET (5-325)
     Route: 048

REACTIONS (5)
  - Poor quality sleep [Unknown]
  - Pain [Unknown]
  - Headache [Unknown]
  - Hyperhidrosis [Unknown]
  - Palpitations [Unknown]
